FAERS Safety Report 5507402-0 (Version None)
Quarter: 2007Q4

REPORT INFORMATION
  Report Type: 
  Country: None (occurrence: None)
  Receive Date: 20071024
  Receipt Date: 20070822
  Transmission Date: 20080405
  Serious: Yes (Life-Threatening, Hospitalization)
  Sender: FDA-Public Use
  Company Number: US-JNJFOC-20070801836

PATIENT
  Age: 35 Year
  Sex: Female

DRUGS (9)
  1. FLEXERIL [Suspect]
     Indication: DRUG USE FOR UNKNOWN INDICATION
     Dosage: ORAL
     Route: 048
  2. DURAGESIC-100 [Suspect]
     Indication: PAIN
  3. OXYCODONE HCL [Suspect]
     Indication: DRUG USE FOR UNKNOWN INDICATION
  4. PHENERGAN [Suspect]
     Indication: DRUG USE FOR UNKNOWN INDICATION
  5. XANAX [Suspect]
     Indication: DRUG USE FOR UNKNOWN INDICATION
  6. VIVELLE [Concomitant]
  7. LEVOTHYROXINE SODIUM [Concomitant]
  8. VORINOSTAT (ANTINEOPLASTIC AGENTS) CAPSULE [Concomitant]
  9. IDARUBICIN HCL (IDARUBICIN) [Concomitant]

REACTIONS (1)
  - CONFUSIONAL STATE [None]
